FAERS Safety Report 14175568 (Version 1)
Quarter: 2017Q4

REPORT INFORMATION
  Report Type: Spontaneous
  Country: US (occurrence: US)
  Receive Date: 20171109
  Receipt Date: 20171109
  Transmission Date: 20180321
  Serious: Yes (Other)
  Sender: FDA-Public Use
  Company Number: US-ALLERGAN-1705953US

PATIENT
  Sex: Male
  Weight: 63.49 kg

DRUGS (4)
  1. COMBIGAN [Suspect]
     Active Substance: BRIMONIDINE TARTRATE\TIMOLOL MALEATE
     Indication: GLAUCOMA
     Dosage: UNK
     Route: 047
     Dates: start: 201605
  2. EYLEA [Suspect]
     Active Substance: AFLIBERCEPT
     Dosage: UNK, SINGLE
     Route: 031
     Dates: start: 201701, end: 201701
  3. EYLEA [Suspect]
     Active Substance: AFLIBERCEPT
     Indication: DIABETIC RETINAL OEDEMA
     Dosage: UNK UNK, SINGLE
     Route: 031
     Dates: start: 20161129, end: 20161129
  4. DORZOLAMIDE [Concomitant]
     Active Substance: DORZOLAMIDE
     Indication: PRODUCT USED FOR UNKNOWN INDICATION
     Dosage: UNK UNK, UNKNOWN
     Route: 065
     Dates: start: 201605

REACTIONS (5)
  - Tenderness [Unknown]
  - Intraocular pressure decreased [Unknown]
  - Visual acuity reduced [Unknown]
  - Facial pain [Unknown]
  - Ocular discomfort [Unknown]
